FAERS Safety Report 6076141-2 (Version None)
Quarter: 2009Q1

REPORT INFORMATION
  Report Type: 
  Country: None (occurrence: None)
  Receive Date: 20090212
  Receipt Date: 20090204
  Transmission Date: 20090719
  Serious: No
  Sender: FDA-Public Use
  Company Number: US-B.I. PHARMACEUTICALS,INC./RIDGEFIELD-2008-BP-01697BP

PATIENT
  Sex: Female

DRUGS (5)
  1. CATAPRES-TTS-1 [Suspect]
     Indication: HYPERTENSION
     Dosage: .1MG
     Route: 061
     Dates: start: 20050101
  2. CATAPRES [Suspect]
     Indication: HYPERTENSION
     Dosage: .6MG
     Route: 048
     Dates: start: 20050101
  3. VICODIN [Concomitant]
     Indication: BACK PAIN
     Route: 048
  4. ATIVAN [Concomitant]
  5. ASPIRIN [Concomitant]

REACTIONS (4)
  - ASTHENIA [None]
  - DRUG INEFFECTIVE [None]
  - HEART RATE DECREASED [None]
  - HYPERTENSION [None]
